FAERS Safety Report 8232520-6 (Version None)
Quarter: 2012Q1

REPORT INFORMATION
  Report Type: 
  Country: None (occurrence: None)
  Receive Date: 20120323
  Receipt Date: 20120315
  Transmission Date: 20120608
  Serious: Yes (Hospitalization)
  Sender: FDA-Public Use
  Company Number: DE-BRACCO-001061

PATIENT
  Sex: Male

DRUGS (3)
  1. MULTIHANCE [Suspect]
     Indication: LIPASE INCREASED
     Route: 042
     Dates: start: 20111102, end: 20111102
  2. MULTIHANCE [Suspect]
     Indication: WEIGHT DECREASED
     Route: 042
     Dates: start: 20111102, end: 20111102
  3. MULTIHANCE [Suspect]
     Indication: NUCLEAR MAGNETIC RESONANCE IMAGING ABDOMINAL
     Route: 042
     Dates: start: 20111102, end: 20111102

REACTIONS (1)
  - VASCULITIS [None]
